FAERS Safety Report 4802137-1 (Version None)
Quarter: 2005Q4

REPORT INFORMATION
  Report Type: 
  Country: None (occurrence: None)
  Receive Date: 20051018
  Receipt Date: 20050708
  Transmission Date: 20060501
  Serious: Yes (Other)
  Sender: FDA-Public Use
  Company Number: PHRM2005FR02084

PATIENT
  Age: 70 Year
  Sex: Female

DRUGS (5)
  1. FEMARA [Suspect]
     Indication: BREAST CANCER RECURRENT
     Dosage: 2.5 MG, QD
     Route: 048
     Dates: start: 20020901
  2. TENORMIN [Concomitant]
     Indication: ARRHYTHMIA
     Dosage: 2 TABS/DAY
     Route: 048
  3. FLECAINIDE ACETATE [Concomitant]
     Indication: ARRHYTHMIA
     Dosage: 200 MG/DAY
     Route: 048
  4. PREVISCAN [Concomitant]
     Route: 048
  5. SECTRAL [Concomitant]

REACTIONS (6)
  - BLEPHARITIS [None]
  - CATARACT [None]
  - HYPERTENSION [None]
  - POLLAKIURIA [None]
  - RASH [None]
  - VISION BLURRED [None]
